FAERS Safety Report 11210996 (Version 2)
Quarter: 2015Q3

REPORT INFORMATION
  Report Type: Spontaneous
  Country: US (occurrence: US)
  Receive Date: 20150623
  Receipt Date: 20150703
  Transmission Date: 20151125
  Serious: No
  Sender: FDA-Public Use
  Company Number: US-ASTRAZENECA-2015SE58949

PATIENT
  Age: 62 Year
  Sex: Female
  Weight: 77.1 kg

DRUGS (7)
  1. ZESTORETIC [Concomitant]
     Active Substance: HYDROCHLOROTHIAZIDE\LISINOPRIL
  2. BYDUREON [Suspect]
     Active Substance: EXENATIDE
     Indication: TYPE 2 DIABETES MELLITUS
     Route: 058
     Dates: start: 201411, end: 2015
  3. SINGULAIR [Concomitant]
     Active Substance: MONTELUKAST SODIUM
     Indication: MULTIPLE ALLERGIES
  4. BLOOD PRESSURE MEDICINE [Concomitant]
     Active Substance: UNSPECIFIED INGREDIENT
     Indication: BLOOD PRESSURE ABNORMAL
  5. DIABETA [Concomitant]
     Active Substance: GLYBURIDE
     Indication: DIABETES MELLITUS
  6. GLUCOPHAGE [Concomitant]
     Active Substance: METFORMIN HYDROCHLORIDE
     Indication: DIABETES MELLITUS
  7. SINGULAIR [Concomitant]
     Active Substance: MONTELUKAST SODIUM
     Indication: ASTHMA

REACTIONS (13)
  - Soft tissue mass [Unknown]
  - Dyspnoea [Unknown]
  - Drug dose omission [Unknown]
  - Laryngitis [Unknown]
  - Injection site erythema [Unknown]
  - Dysphonia [Not Recovered/Not Resolved]
  - Injection site mass [Recovering/Resolving]
  - Productive cough [Not Recovered/Not Resolved]
  - Injection site pruritus [Unknown]
  - Upper respiratory tract infection [Unknown]
  - Pharyngeal oedema [Not Recovered/Not Resolved]
  - Weight decreased [Unknown]
  - Thyroid neoplasm [Unknown]

NARRATIVE: CASE EVENT DATE: 201503
